FAERS Safety Report 12676342 (Version 1)
Quarter: 2016Q3

REPORT INFORMATION
  Report Type: Spontaneous
  Country: FR (occurrence: FR)
  Receive Date: 20160823
  Receipt Date: 20160823
  Transmission Date: 20161109
  Serious: Yes (Life-Threatening)
  Sender: FDA-Public Use
  Company Number: FR-ROCHE-1816913

PATIENT
  Age: 68 Year
  Sex: Male

DRUGS (14)
  1. MABTHERA [Suspect]
     Active Substance: RITUXIMAB
     Dosage: CYCLE 3 DAY 1
     Route: 041
     Dates: start: 20151211
  2. FLUDARABINE [Suspect]
     Active Substance: FLUDARABINE PHOSPHATE
     Dosage: CYCLE 4 DAY 2, DAY 3 AND DAY 4
     Route: 048
     Dates: start: 20160119
  3. MABTHERA [Suspect]
     Active Substance: RITUXIMAB
     Dosage: CYCLE 4 DAY 1
     Route: 041
     Dates: start: 20160119
  4. ENDOXAN [Suspect]
     Active Substance: CYCLOPHOSPHAMIDE
     Dosage: CYCLE 4 DAY 2, DAY 3 AND DAY 4
     Route: 048
     Dates: start: 20160119
  5. FLUDARABINE [Suspect]
     Active Substance: FLUDARABINE PHOSPHATE
     Indication: CHRONIC LYMPHOCYTIC LEUKAEMIA
     Dosage: CYCLE 1 DAY 2, DAY 3 AND DAY 4
     Route: 048
     Dates: start: 20151013
  6. FLUDARABINE [Suspect]
     Active Substance: FLUDARABINE PHOSPHATE
     Dosage: CYCLE 2 DAY 2, DAY 3 AND DAY 4
     Route: 048
     Dates: start: 20151113
  7. APROVEL [Concomitant]
     Active Substance: IRBESARTAN
  8. MABTHERA [Suspect]
     Active Substance: RITUXIMAB
     Indication: CHRONIC LYMPHOCYTIC LEUKAEMIA
     Dosage: CYCLE 1 DAY 1
     Route: 041
     Dates: start: 20151013
  9. ENDOXAN [Suspect]
     Active Substance: CYCLOPHOSPHAMIDE
     Dosage: CYCLE 2 DAY 2, DAY 3 AND DAY 4
     Route: 048
     Dates: start: 20151113
  10. MABTHERA [Suspect]
     Active Substance: RITUXIMAB
     Dosage: CYCLE 2 DAY 1
     Route: 041
     Dates: start: 20151113
  11. ENDOXAN [Suspect]
     Active Substance: CYCLOPHOSPHAMIDE
     Dosage: CYCLE 3 DAY 2, DAY 3 AND DAY 4
     Route: 048
     Dates: start: 20151211
  12. ENDOXAN [Suspect]
     Active Substance: CYCLOPHOSPHAMIDE
     Indication: CHRONIC LYMPHOCYTIC LEUKAEMIA
     Dosage: CYCLE 1 DAY 2, DAY 3 AND DAY 4
     Route: 048
     Dates: start: 20151013
  13. FLUDARABINE [Suspect]
     Active Substance: FLUDARABINE PHOSPHATE
     Dosage: CYCLE 3 DAY 2, DAY 3 AND DAY 4
     Route: 048
     Dates: start: 20151211
  14. LERCAN [Concomitant]
     Active Substance: LERCANIDIPINE

REACTIONS (1)
  - Acute myeloid leukaemia [Recovered/Resolved with Sequelae]

NARRATIVE: CASE EVENT DATE: 201604
